FAERS Safety Report 13081378 (Version 1)
Quarter: 2016Q4

REPORT INFORMATION
  Report Type: Spontaneous
  Country: TR (occurrence: TR)
  Receive Date: 20161228
  Receipt Date: 20161228
  Transmission Date: 20170207
  Serious: Yes (Other)
  Sender: FDA-Public Use
  Company Number: TR-JUBILANT CADISTA PHARMACEUTICALS-2016JUB00426

PATIENT
  Age: 45 Year
  Sex: Male

DRUGS (7)
  1. CHOLCHICINE [Concomitant]
     Route: 065
  2. TIOTROPIUM [Concomitant]
     Active Substance: TIOTROPIUM
     Route: 065
  3. METHYLPREDNISOLONE. [Suspect]
     Active Substance: METHYLPREDNISOLONE
     Dosage: 4 MG, 1X/DAY
     Route: 065
  4. BRONCHODILATOR [Concomitant]
     Active Substance: UNSPECIFIED INGREDIENT
     Route: 065
  5. CORTICOSTEROID [Suspect]
     Active Substance: CORTICOSTEROID NOS
     Indication: ALVEOLITIS ALLERGIC
     Dosage: UNK
     Dates: start: 2012
  6. METHYLPREDNISOLONE. [Suspect]
     Active Substance: METHYLPREDNISOLONE
     Indication: ALVEOLITIS ALLERGIC
     Dosage: 40 MG, 1X/DAY
     Route: 065
     Dates: start: 201303
  7. METHYLPREDNISOLONE. [Suspect]
     Active Substance: METHYLPREDNISOLONE
     Dosage: 40 MG, 1X/DAY
     Route: 065

REACTIONS (3)
  - Diabetes mellitus [Unknown]
  - Cushingoid [Unknown]
  - Osteoporosis [Unknown]
